FAERS Safety Report 5025871-X (Version None)
Quarter: 2006Q2

REPORT INFORMATION
  Report Type: 
  Country: None (occurrence: None)
  Receive Date: 20060427
  Receipt Date: 20050818
  Transmission Date: 20061013
  Serious: Yes (Other)
  Sender: FDA-Public Use
  Company Number: 2005117228

PATIENT
  Age: 46 Year
  Sex: Male

DRUGS (4)
  1. ZITHROMAX           (MAC) [Suspect]
     Indication: INFECTION PROPHYLAXIS
     Dosage: 1200 MG (1 IN 1 WK)
     Dates: start: 20050812
  2. FENTANYL [Concomitant]
  3. VERSED [Concomitant]
  4. BACTRIM [Concomitant]

REACTIONS (2)
  - ANOREXIA [None]
  - CONSTIPATION [None]
